FAERS Safety Report 12970477 (Version 1)
Quarter: 2016Q4

REPORT INFORMATION
  Report Type: Spontaneous
  Country: US (occurrence: US)
  Receive Date: 20161122
  Receipt Date: 20161122
  Transmission Date: 20170207
  Serious: Yes (Other)
  Sender: FDA-Public Use
  Company Number: None

PATIENT
  Age: 62 Year
  Sex: Female

DRUGS (1)
  1. QSYMIA [Suspect]
     Active Substance: PHENTERMINE HYDROCHLORIDE\TOPIRAMATE
     Indication: OBESITY
     Dosage: 3.75MG/23MG DAILY ORAL
     Route: 048

REACTIONS (3)
  - Dizziness [None]
  - Dry mouth [None]
  - Disturbance in attention [None]

NARRATIVE: CASE EVENT DATE: 20160923
